FAERS Safety Report 7300949-6 (Version None)
Quarter: 2011Q1

REPORT INFORMATION
  Report Type: 
  Country: None (occurrence: None)
  Receive Date: 20110218
  Receipt Date: 20110210
  Transmission Date: 20110831
  Serious: Yes (Other)
  Sender: FDA-Public Use
  Company Number: AU-CELGENEUS-008-C5013-11021307

PATIENT
  Sex: Male
  Weight: 75.3 kg

DRUGS (6)
  1. COLOXYL C SENNA [Concomitant]
     Indication: CONSTIPATION
     Dosage: 50/5 MG
     Route: 048
     Dates: start: 20091030
  2. ASPIRIN [Concomitant]
     Route: 048
     Dates: start: 20091013
  3. ALLOPURINOL [Concomitant]
     Indication: GOUT
     Route: 048
     Dates: start: 20101202
  4. CC-5013 [Suspect]
     Indication: MULTIPLE MYELOMA
     Route: 048
     Dates: start: 20091001
  5. DEXAMETHASONE [Suspect]
     Indication: MULTIPLE MYELOMA
     Route: 065
     Dates: start: 20091001
  6. OSTELIN CALCIUM [Concomitant]
     Indication: PROPHYLAXIS
     Route: 048
     Dates: start: 20100805

REACTIONS (1)
  - LUNG NEOPLASM MALIGNANT [None]
